FAERS Safety Report 16840867 (Version 2)
Quarter: 2019Q4

REPORT INFORMATION
  Report Type: Report from Study
  Country: JP (occurrence: JP)
  Receive Date: 20190923
  Receipt Date: 20191024
  Transmission Date: 20200122
  Serious: Yes (Other)
  Sender: FDA-Public Use
  Company Number: JP-UCBSA-2019040327

PATIENT
  Age: 68 Year
  Sex: Female
  Weight: 41 kg

DRUGS (26)
  1. LACOSAMIDE. [Suspect]
     Active Substance: LACOSAMIDE
     Indication: SIMPLE PARTIAL SEIZURES
     Dosage: 25 MILLIGRAM, 2X/DAY (BID)
     Route: 048
     Dates: start: 20180508, end: 201805
  2. ALEVIATIN [PHENYTOIN SODIUM] [Concomitant]
     Dosage: 10 MG DAILY
     Route: 048
     Dates: start: 20180612, end: 20180626
  3. THYRADIN-S [Concomitant]
     Active Substance: LEVOTHYROXINE
     Dosage: 80 MG DAILY
     Route: 048
     Dates: end: 20190228
  4. SOLU-CORTEF [Concomitant]
     Active Substance: HYDROCORTISONE SODIUM SUCCINATE
     Route: 042
     Dates: start: 20190416, end: 20190416
  5. SOLU-MEDROL [Concomitant]
     Active Substance: METHYLPREDNISOLONE SODIUM SUCCINATE
     Dosage: 37.5 MG DAILY
     Route: 042
     Dates: start: 20190419, end: 20190419
  6. EXCEGRAN [Concomitant]
     Active Substance: ZONISAMIDE
     Indication: PARTIAL SEIZURES WITH SECONDARY GENERALISATION
     Dosage: 600 MILLIGRAM, ONCE DAILY (QD)
     Route: 048
  7. LAXOBERON [Concomitant]
     Active Substance: SODIUM PICOSULFATE
     Indication: PRODUCT USED FOR UNKNOWN INDICATION
     Route: 048
  8. KAYTWO [Concomitant]
     Active Substance: MENATETRENONE
     Route: 048
     Dates: start: 20190323
  9. SOLU-CORTEF [Concomitant]
     Active Substance: HYDROCORTISONE SODIUM SUCCINATE
     Indication: ASTHMA
     Dosage: 200 MG DAILY
     Route: 042
     Dates: start: 20190416, end: 20190416
  10. LACOSAMIDE. [Suspect]
     Active Substance: LACOSAMIDE
     Dosage: 100 MILLIGRAM, 2X/DAY (BID)
     Route: 048
     Dates: start: 20180621, end: 2018
  11. ALEVIATIN [PHENYTOIN SODIUM] [Concomitant]
     Indication: PARTIAL SEIZURES WITH SECONDARY GENERALISATION
     Dosage: 30 MG DAILY
     Route: 048
     Dates: start: 20180605, end: 20180611
  12. CLARITHROMYCIN. [Concomitant]
     Active Substance: CLARITHROMYCIN
     Indication: PRODUCT USED FOR UNKNOWN INDICATION
     Route: 048
  13. LACOSAMIDE. [Suspect]
     Active Substance: LACOSAMIDE
     Indication: PARTIAL SEIZURES WITH SECONDARY GENERALISATION
     Dosage: 50 MILLIGRAM, 2X/DAY (BID)
     Route: 048
     Dates: start: 20180515, end: 2018
  14. THYRADIN-S [Concomitant]
     Active Substance: LEVOTHYROXINE
     Indication: PRODUCT USED FOR UNKNOWN INDICATION
     Dosage: 60 MG DAILY
     Route: 048
     Dates: start: 20190301
  15. KAYTWO [Concomitant]
     Active Substance: MENATETRENONE
     Indication: PRODUCT USED FOR UNKNOWN INDICATION
     Dosage: 4 MG DAILY
     Route: 048
     Dates: start: 20190323
  16. MUCODYNE [Concomitant]
     Active Substance: CARBOCYSTEINE
     Route: 048
  17. PULLSMALIN R [Concomitant]
     Indication: PRODUCT USED FOR UNKNOWN INDICATION
     Dosage: 30 MG DAILY
     Route: 048
  18. LAXOBERON [Concomitant]
     Active Substance: SODIUM PICOSULFATE
     Route: 048
  19. SOLU-MEDROL [Concomitant]
     Active Substance: METHYLPREDNISOLONE SODIUM SUCCINATE
     Dosage: 75 MG DAILY
     Route: 042
     Dates: start: 20190418, end: 20190418
  20. LACOSAMIDE. [Suspect]
     Active Substance: LACOSAMIDE
     Dosage: 75 MILLIGRAM, 2X/DAY (BID)
     Route: 048
     Dates: start: 20180605, end: 201806
  21. PULLSMALIN R [Concomitant]
     Route: 048
  22. LACOSAMIDE. [Suspect]
     Active Substance: LACOSAMIDE
     Dosage: 125 MILLIGRAM, 2X/DAY (BID)
     Route: 048
     Dates: start: 20180711
  23. EXCEGRAN [Concomitant]
     Active Substance: ZONISAMIDE
     Indication: SIMPLE PARTIAL SEIZURES
     Dosage: 600 MG DAILY
     Route: 048
  24. ALEVIATIN [PHENYTOIN SODIUM] [Concomitant]
     Indication: SIMPLE PARTIAL SEIZURES
     Dosage: 50 MG DAILY
     Route: 048
     Dates: start: 20180529, end: 20180604
  25. MUCODYNE [Concomitant]
     Active Substance: CARBOCYSTEINE
     Indication: PRODUCT USED FOR UNKNOWN INDICATION
     Dosage: 1200 MG DAILY
     Route: 048
  26. SOLU-MEDROL [Concomitant]
     Active Substance: METHYLPREDNISOLONE SODIUM SUCCINATE
     Indication: ASTHMA
     Dosage: 150 MG DAILY
     Route: 042
     Dates: start: 20190417, end: 20190417

REACTIONS (2)
  - Off label use [Unknown]
  - Pneumonia [Recovered/Resolved]

NARRATIVE: CASE EVENT DATE: 20180508
